FAERS Safety Report 15607015 (Version 3)
Quarter: 2021Q4

REPORT INFORMATION
  Report Type: Other
  Country: JP (occurrence: None)
  Receive Date: 20181112
  Receipt Date: 20211101
  Transmission Date: 20220303
  Serious: Yes (Other)
  Sender: FDA-Public Use
  Company Number: JP-ROCHE-2211357

PATIENT

DRUGS (3)
  1. RITUXIMAB [Suspect]
     Active Substance: RITUXIMAB
     Indication: Follicular lymphoma
     Dosage: ON DAY 1 OF FOUR 7-DAY CYCLES (INDUCTION PERIOD).?EVERY 8 WEEKS FOR SIX CYCLES (MAINTENACE)
     Route: 042
  2. PREDNISONE [Concomitant]
     Active Substance: PREDNISONE
  3. ACETAMINOPHEN [Concomitant]
     Active Substance: ACETAMINOPHEN

REACTIONS (8)
  - Acute kidney injury [Unknown]
  - Genital prolapse [Unknown]
  - Pneumonia [Unknown]
  - Neutropenia [Unknown]
  - Upper respiratory tract infection [Unknown]
  - Urinary tract infection [Unknown]
  - Infusion related reaction [Unknown]
  - Interstitial lung disease [Unknown]
